FAERS Safety Report 5385597-X (Version None)
Quarter: 2007Q3

REPORT INFORMATION
  Report Type: 
  Country: None (occurrence: None)
  Receive Date: 20070712
  Receipt Date: 20070704
  Transmission Date: 20080115
  Serious: Yes (Hospitalization, Other)
  Sender: FDA-Public Use
  Company Number: US-ABBOTT-07P-163-0373656-00

PATIENT
  Age: 49 Year
  Sex: Male

DRUGS (6)
  1. WARFARIN SODIUM [Suspect]
     Indication: CEREBROVASCULAR ACCIDENT
     Dosage: NOT REPORTED
  2. DEXAMETHASONE 0.5MG TAB [Suspect]
     Indication: SYSTEMIC LUPUS ERYTHEMATOSUS
     Dosage: NOT REPORTED
  3. DEXAMETHASONE 0.5MG TAB [Suspect]
     Indication: ANTIPHOSPHOLIPID SYNDROME
  4. HEPARIN [Concomitant]
     Indication: CEREBROVASCULAR ACCIDENT
     Dosage: INFUSION
     Route: 042
  5. ENOXAPARIN SODIUM [Concomitant]
     Indication: INTERNATIONAL NORMALISED RATIO DECREASED
     Dosage: NOT REPORTED
  6. ARGATROBAN [Concomitant]
     Indication: HEPARIN-INDUCED THROMBOCYTOPENIA

REACTIONS (4)
  - DELIRIUM [None]
  - MUSCLE NECROSIS [None]
  - PSYCHOTIC DISORDER [None]
  - SKIN NECROSIS [None]
